FAERS Safety Report 11619565 (Version 4)
Quarter: 2015Q4

REPORT INFORMATION
  Report Type: Report from Study
  Country: DE (occurrence: DE)
  Receive Date: 20151012
  Receipt Date: 20151210
  Transmission Date: 20160304
  Serious: Yes (Life-Threatening, Hospitalization, Other)
  Sender: FDA-Public Use
  Company Number: DE-JNJFOC-20151007587

PATIENT
  Sex: Male

DRUGS (2)
  1. XARELTO [Suspect]
     Active Substance: RIVAROXABAN
     Indication: ATRIAL FIBRILLATION
     Route: 048
  2. XARELTO [Suspect]
     Active Substance: RIVAROXABAN
     Indication: CEREBROVASCULAR ACCIDENT PROPHYLAXIS
     Route: 048

REACTIONS (6)
  - Subdural haematoma [Recovered/Resolved with Sequelae]
  - Nasal operation [Recovered/Resolved]
  - Facial bones fracture [Unknown]
  - Pneumonia aspiration [Unknown]
  - Traumatic intracranial haemorrhage [Recovered/Resolved with Sequelae]
  - Epilepsy [Unknown]

NARRATIVE: CASE EVENT DATE: 20141105
